FAERS Safety Report 12169724 (Version 1)
Quarter: 2016Q1

REPORT INFORMATION
  Report Type: Other
  Country: US (occurrence: US)
  Receive Date: 20160310
  Receipt Date: 20160310
  Transmission Date: 20160526
  Serious: Yes (Other)
  Sender: FDA-Public Use
  Company Number: US-COL_22110_2016

PATIENT
  Sex: Female

DRUGS (1)
  1. TOM^S OF MAINE NATURAL LONG-LASTING POWDER DEODORANT STICK [Suspect]
     Active Substance: COSMETICS
     Indication: SKIN ODOUR ABNORMAL
     Dosage: NI/ONCE/
     Route: 061
     Dates: start: 201602, end: 201602

REACTIONS (5)
  - Wound [Recovering/Resolving]
  - Axillary pain [Recovering/Resolving]
  - Application site vesicles [Recovering/Resolving]
  - Dermatitis contact [Recovering/Resolving]
  - Application site erythema [Recovering/Resolving]

NARRATIVE: CASE EVENT DATE: 201602
